FAERS Safety Report 19913485 (Version 1)
Quarter: 2021Q4

REPORT INFORMATION
  Report Type: Spontaneous
  Country: FR (occurrence: FR)
  Receive Date: 20211004
  Receipt Date: 20211004
  Transmission Date: 20220303
  Serious: Yes (Death, Hospitalization)
  Sender: FDA-Public Use
  Company Number: None

PATIENT
  Age: 62 Year
  Sex: Female
  Weight: 74 kg

DRUGS (1)
  1. CAPECITABINE [Suspect]
     Active Substance: CAPECITABINE
     Indication: Breast cancer metastatic
     Dosage: 3300 MILLIGRAM
     Route: 048
     Dates: start: 20160903, end: 20160911

REACTIONS (4)
  - Pancytopenia [Fatal]
  - Toxicity to various agents [Fatal]
  - Mucosal inflammation [Fatal]
  - Diarrhoea [Fatal]

NARRATIVE: CASE EVENT DATE: 20160901
